FAERS Safety Report 8186393 (Version 2)
Quarter: 2012Q4

REPORT INFORMATION
  Report Type: 
  Country: US (occurrence: US)
  Receive Date: 20111018
  Receipt Date: 20121213
  Transmission Date: 20130627
  Serious: Yes (Death)
  Sender: FDA-Public Use
  Company Number: US-GLAXOSMITHKLINE-A0922513A

PATIENT
  Sex: Male

DRUGS (1)
  1. AVANDIA [Suspect]
     Indication: TYPE 2 DIABETES MELLITUS
     Dosage: 2MG Per day
     Route: 048
     Dates: start: 20070228, end: 20070607

REACTIONS (2)
  - Death [Fatal]
  - Myocardial infarction [Unknown]
